FAERS Safety Report 5692909-6 (Version None)
Quarter: 2008Q2

REPORT INFORMATION
  Report Type: 
  Country: None (occurrence: None)
  Receive Date: 20080327
  Receipt Date: 20080109
  Transmission Date: 20081010
  Serious: Yes (Other)
  Sender: FDA-Public Use
  Company Number: A03200800086

PATIENT
  Age: 60 Year
  Sex: Female

DRUGS (4)
  1. AMBIEN CR [Suspect]
     Indication: SLEEP DISORDER
     Dosage: TAKES TWO 12.5 MG TABLETS A DAY - ORAL
     Route: 048
     Dates: start: 20070301
  2. QUINAPRIL [Concomitant]
  3. CLONAZEPAM [Concomitant]
  4. OLANZAPINE [Concomitant]

REACTIONS (6)
  - AGGRESSION [None]
  - AMNESIA [None]
  - DRUG ABUSE [None]
  - HYPERSOMNIA [None]
  - LOSS OF CONSCIOUSNESS [None]
  - SOMNOLENCE [None]
